FAERS Safety Report 8068708-7 (Version None)
Quarter: 2012Q1

REPORT INFORMATION
  Report Type: 
  Country: None (occurrence: None)
  Receive Date: 20120124
  Receipt Date: 20111202
  Transmission Date: 20120608
  Serious: No
  Sender: FDA-Public Use
  Company Number: US-AMGEN-USASP2011050401

PATIENT
  Age: 83 Year
  Sex: Female
  Weight: 55.782 kg

DRUGS (7)
  1. PROLIA [Suspect]
     Indication: OSTEOPOROSIS POSTMENOPAUSAL
     Dosage: 60 MG, Q6MO
     Dates: start: 20110801
  2. ASPIRIN [Concomitant]
     Dosage: 81 MG, QD
  3. TOPROL-XL [Concomitant]
     Dosage: 25 MG, QD
  4. NAPROXEN [Concomitant]
     Dosage: UNK
  5. MULTI-VITAMIN [Concomitant]
     Dosage: UNK
  6. PREVACID [Concomitant]
     Dosage: 30 MG, QD
  7. CALCIUM WITH VITAMIN D [Concomitant]
     Dosage: UNK

REACTIONS (2)
  - CYSTITIS [None]
  - DYSURIA [None]
